FAERS Safety Report 12218074 (Version 1)
Quarter: 2016Q1

REPORT INFORMATION
  Report Type: Spontaneous
  Country: US (occurrence: None)
  Receive Date: 20160328
  Receipt Date: 20160328
  Transmission Date: 20160526
  Serious: Yes (Disabling)
  Sender: FDA-Public Use
  Company Number: None

PATIENT
  Age: 32 Year
  Sex: Female
  Weight: 93.9 kg

DRUGS (4)
  1. TAKE ACTION [Suspect]
     Active Substance: LEVONORGESTREL
     Indication: CONTRACEPTION
     Dosage: 1 PILL WITHIN 72 HOURS AFTER SEX
     Route: 048
     Dates: start: 20151217, end: 20151217
  2. VITAMIN B12 [Concomitant]
     Active Substance: CYANOCOBALAMIN
  3. TRAMADOL. [Concomitant]
     Active Substance: TRAMADOL
  4. STEROIDS [Concomitant]
     Active Substance: UNSPECIFIED INGREDIENT

REACTIONS (8)
  - Skin disorder [None]
  - Pain [None]
  - Hypoaesthesia [None]
  - Musculoskeletal stiffness [None]
  - Peripheral swelling [None]
  - Burning sensation [None]
  - Paraesthesia [None]
  - Joint swelling [None]

NARRATIVE: CASE EVENT DATE: 20151221
